FAERS Safety Report 7546899-1 (Version None)
Quarter: 2011Q2

REPORT INFORMATION
  Report Type: 
  Country: None (occurrence: None)
  Receive Date: 20110607
  Receipt Date: 20110523
  Transmission Date: 20111010
  Serious: Yes (Hospitalization, Other)
  Sender: FDA-Public Use
  Company Number: 2011MA006343

PATIENT
  Age: 57 Year
  Sex: Male

DRUGS (3)
  1. METAMIZOLE [Concomitant]
  2. ACETYLSALICYLI  ACID [Concomitant]
  3. IBUPROFEN [Suspect]
     Dosage: 1 ;1X; PO
     Route: 048
     Dates: start: 20061201

REACTIONS (3)
  - ACUTE MYOCARDIAL INFARCTION [None]
  - ARTERIOSPASM CORONARY [None]
  - PERIPHERAL ISCHAEMIA [None]
